FAERS Safety Report 24637692 (Version 2)
Quarter: 2025Q1

REPORT INFORMATION
  Report Type: Spontaneous
  Country: US (occurrence: US)
  Receive Date: 20241119
  Receipt Date: 20250121
  Transmission Date: 20250409
  Serious: No
  Sender: BIOGEN
  Company Number: US-BIOGEN-2023BI01241958

PATIENT
  Sex: Female

DRUGS (1)
  1. VUMERITY [Suspect]
     Active Substance: DIROXIMEL FUMARATE
     Indication: Multiple sclerosis
     Route: 050
     Dates: start: 20240120

REACTIONS (5)
  - Intentional product misuse [Not Recovered/Not Resolved]
  - Loss of control of legs [Unknown]
  - Gait disturbance [Unknown]
  - Pruritus [Unknown]
  - Flushing [Recovered/Resolved]
